FAERS Safety Report 5310260-0 (Version None)
Quarter: 2007Q2

REPORT INFORMATION
  Report Type: 
  Country: None (occurrence: None)
  Receive Date: 20070427
  Receipt Date: 20070413
  Transmission Date: 20071010
  Serious: Yes (Hospitalization)
  Sender: FDA-Public Use
  Company Number: US-SHR-US-2007-010425

PATIENT
  Age: 48 Year
  Sex: Female
  Weight: 53.515 kg

DRUGS (3)
  1. BETASERON [Suspect]
     Indication: RELAPSING-REMITTING MULTIPLE SCLEROSIS
     Dosage: 8 MIU, EVERY 2D
     Route: 058
     Dates: start: 20041201
  2. LEVOTHYROXINE SODIUM [Concomitant]
     Dosage: 112 A?G, 1X/DAY
  3. TRIAMIZIDE [Concomitant]
     Dosage: 37.5/251X/DAY

REACTIONS (2)
  - ABDOMINAL PAIN [None]
  - DIARRHOEA [None]
